FAERS Safety Report 7128001-3 (Version None)
Quarter: 2010Q4

REPORT INFORMATION
  Report Type: 
  Country: None (occurrence: None)
  Receive Date: 20101130
  Receipt Date: 20101118
  Transmission Date: 20110411
  Serious: Yes (Other)
  Sender: FDA-Public Use
  Company Number: PHHY2010US78579

PATIENT
  Sex: Female

DRUGS (6)
  1. RECLAST [Suspect]
     Dosage: UNK
     Dates: start: 20100601
  2. MERCAPTOPURINE [Concomitant]
     Dosage: 50 MG
  3. NITROFURANTOIN [Concomitant]
     Dosage: 50 MG
  4. ASPIRIN [Concomitant]
     Dosage: 81 MG
  5. CALCIUM [Concomitant]
     Dosage: 1500 MG
  6. VITAMIN D [Concomitant]
     Dosage: 1000 MG

REACTIONS (2)
  - ASTHENIA [None]
  - WEIGHT DECREASED [None]
